FAERS Safety Report 15598776 (Version 7)
Quarter: 2022Q1

REPORT INFORMATION
  Report Type: Spontaneous
  Country: US (occurrence: US)
  Receive Date: 20181108
  Receipt Date: 20220106
  Transmission Date: 20220424
  Serious: Yes (Hospitalization, Other)
  Sender: FDA-Public Use
  Company Number: US-VIFOR (INTERNATIONAL) INC.-VIT-2018-10805

PATIENT
  Age: 58 Year
  Sex: Female
  Weight: 62.198 kg

DRUGS (19)
  1. VELTASSA [Suspect]
     Active Substance: PATIROMER
     Indication: Hyperkalaemia
     Route: 048
     Dates: start: 20160708
  2. VELTASSA [Suspect]
     Active Substance: PATIROMER
     Route: 048
  3. DOCUSATE SODIUM [Concomitant]
     Active Substance: DOCUSATE SODIUM
  4. SENSIPAR [Concomitant]
     Active Substance: CINACALCET HYDROCHLORIDE
  5. ASCORBIC ACID\BIOTIN\CALCIUM PANTOTHENATE\CYANOCOBALAMIN\FOLIC ACID\NI [Concomitant]
     Active Substance: ASCORBIC ACID\BIOTIN\CALCIUM PANTOTHENATE\CYANOCOBALAMIN\FOLIC ACID\NIACINAMIDE\PYRIDOXINE HYDROCHLO
  6. RENVELA [Concomitant]
     Active Substance: SEVELAMER CARBONATE
  7. CRESTOR [Concomitant]
     Active Substance: ROSUVASTATIN CALCIUM
  8. ACETAMINOPHEN [Concomitant]
     Active Substance: ACETAMINOPHEN
  9. SERTRALINE HYDROCHLORIDE [Concomitant]
     Active Substance: SERTRALINE HYDROCHLORIDE
  10. LEVEMIR [Concomitant]
     Active Substance: INSULIN DETEMIR
  11. CALCIUM ACETATE [Concomitant]
     Active Substance: CALCIUM ACETATE
  12. HUMALOG MIX50/50 [Concomitant]
     Active Substance: INSULIN LISPRO
  13. FUROSEMIDE [Concomitant]
     Active Substance: FUROSEMIDE
  14. LANTUS [Concomitant]
     Active Substance: INSULIN GLARGINE
  15. CARVEDILOL [Concomitant]
     Active Substance: CARVEDILOL
  16. VITAMIN D [Concomitant]
     Active Substance: VITAMIN D NOS
  17. TRADJENTA [Concomitant]
     Active Substance: LINAGLIPTIN
  18. NIFEDIPINE [Concomitant]
     Active Substance: NIFEDIPINE
  19. COENZYME Q10 [Concomitant]
     Active Substance: DIETARY SUPPLEMENT\UBIDECARENONE

REACTIONS (7)
  - Blood glucose decreased [Unknown]
  - Hepatitis [Unknown]
  - Blood potassium increased [Not Recovered/Not Resolved]
  - Hypertension [Not Recovered/Not Resolved]
  - Product dose omission issue [Recovered/Resolved]
  - Dizziness [Unknown]
  - Gait disturbance [Unknown]

NARRATIVE: CASE EVENT DATE: 20181025
